FAERS Safety Report 11641278 (Version 13)
Quarter: 2017Q1

REPORT INFORMATION
  Report Type: Report from Study
  Country: CA (occurrence: CA)
  Receive Date: 20151019
  Receipt Date: 20170208
  Transmission Date: 20170428
  Serious: Yes (Hospitalization, Other)
  Sender: FDA-Public Use
  Company Number: CA-VALIDUS PHARMACEUTICALS LLC-CA-2015VAL000543

PATIENT

DRUGS (3)
  1. SANDOSTATIN [Suspect]
     Active Substance: OCTREOTIDE ACETATE
     Indication: NEUROENDOCRINE TUMOUR
     Dosage: 20 MG, QMO (ONCE A MONTH), SANDOSTATIN LAR
     Route: 030
     Dates: start: 200810
  2. METOPROLOL TARTRATE. [Suspect]
     Active Substance: METOPROLOL TARTRATE
     Indication: PRODUCT USED FOR UNKNOWN INDICATION
     Dosage: 25 MG, QD (DAILY)
     Route: 065
  3. SANDOSTATIN [Suspect]
     Active Substance: OCTREOTIDE ACETATE
     Dosage: 20 MG, QMO (EVERY 4 WEEKS)
     Route: 030
     Dates: start: 20160127

REACTIONS (37)
  - Blood sodium decreased [Recovered/Resolved]
  - Abdominal discomfort [Unknown]
  - Asthenia [Not Recovered/Not Resolved]
  - Skin cancer [Unknown]
  - Blood pressure systolic increased [Unknown]
  - Fall [Unknown]
  - Weight increased [Unknown]
  - Cerebrovascular accident [Unknown]
  - Arthritis [Unknown]
  - Flatulence [Unknown]
  - Cardiac failure [Unknown]
  - Second primary malignancy [Unknown]
  - Burning sensation [Unknown]
  - Constipation [Unknown]
  - Candida infection [Not Recovered/Not Resolved]
  - Hypoaesthesia [Unknown]
  - Confusional state [Recovered/Resolved]
  - Hypertension [Unknown]
  - Pain [Unknown]
  - Abdominal pain [Unknown]
  - Diarrhoea [Unknown]
  - Pneumonia [Recovered/Resolved]
  - Urinary tract infection [Recovered/Resolved]
  - Neck pain [Unknown]
  - Peripheral swelling [Unknown]
  - Weight decreased [Unknown]
  - Sciatica [Unknown]
  - Bowel movement irregularity [Unknown]
  - Intervertebral disc degeneration [Unknown]
  - Heart rate increased [Unknown]
  - Contusion [Unknown]
  - Eye contusion [Unknown]
  - Blood pressure diastolic decreased [Unknown]
  - Eating disorder [Unknown]
  - Regurgitation [Unknown]
  - Back pain [Recovering/Resolving]
  - Injection site pain [Unknown]

NARRATIVE: CASE EVENT DATE: 2013
